FAERS Safety Report 7205779-1 (Version None)
Quarter: 2010Q4

REPORT INFORMATION
  Report Type: 
  Country: None (occurrence: None)
  Receive Date: 20101231
  Receipt Date: 20101223
  Transmission Date: 20110411
  Serious: Yes (Other)
  Sender: FDA-Public Use
  Company Number: US-PFIZER INC-2010179514

PATIENT
  Sex: Male
  Weight: 95 kg

DRUGS (6)
  1. LIPITOR [Suspect]
     Indication: BLOOD CHOLESTEROL
     Dosage: UNK
  2. PLAVIX [Concomitant]
     Dosage: UNK
  3. LOTREL [Concomitant]
     Dosage: UNK
  4. TOPROL-XL [Concomitant]
     Dosage: UNK
  5. FISH OIL [Concomitant]
     Dosage: UNK
  6. GRAPE SEED [Concomitant]
     Dosage: UNK

REACTIONS (2)
  - CORONARY ARTERY OCCLUSION [None]
  - MUSCLE SPASMS [None]
